FAERS Safety Report 23543096 (Version 1)
Quarter: 2024Q1

REPORT INFORMATION
  Report Type: Spontaneous
  Country: GB (occurrence: GB)
  Receive Date: 20240220
  Receipt Date: 20240220
  Transmission Date: 20240409
  Serious: Yes (Other)
  Sender: FDA-Public Use
  Company Number: GB-Accord-407318

PATIENT
  Age: 55 Year
  Sex: Male

DRUGS (8)
  1. CLOZAPINE [Suspect]
     Active Substance: CLOZAPINE
     Indication: Schizophrenia
     Dosage: REDUCE TO 200 MG
  2. DIAZEPAM [Concomitant]
     Active Substance: DIAZEPAM
     Indication: Seizure prophylaxis
     Dosage: REDUCE HIS DOSE BY 1 MG,
  3. LAMOTRIGINE [Concomitant]
     Active Substance: LAMOTRIGINE
     Indication: Product used for unknown indication
  4. VALPROATE SODIUM [Concomitant]
     Active Substance: VALPROATE SODIUM
     Indication: Product used for unknown indication
  5. PREGABALIN [Concomitant]
     Active Substance: PREGABALIN
     Indication: Anxiety
     Dosage: 100 MG/ 150 MG/150 MG
  6. VORTIOXETINE [Concomitant]
     Active Substance: VORTIOXETINE
     Indication: Cognitive disorder
     Dosage: 20 MG EVERY MORNING
  7. AMISULPRIDE [Concomitant]
     Active Substance: AMISULPRIDE
     Indication: Product used for unknown indication
  8. PIRENZEPINE HYDROCHLORIDE [Concomitant]
     Active Substance: PIRENZEPINE HYDROCHLORIDE
     Indication: Product used for unknown indication

REACTIONS (8)
  - Generalised tonic-clonic seizure [Recovered/Resolved]
  - Salivary hypersecretion [Unknown]
  - Sedation [Unknown]
  - Constipation [Unknown]
  - Lower respiratory tract infection [Unknown]
  - Drug level increased [Unknown]
  - Joint dislocation [Unknown]
  - Drug level fluctuating [Unknown]

NARRATIVE: CASE EVENT DATE: 20220101
